FAERS Safety Report 13080832 (Version 2)
Quarter: 2017Q1

REPORT INFORMATION
  Report Type: Spontaneous
  Country: US (occurrence: US)
  Receive Date: 20170103
  Receipt Date: 20170124
  Transmission Date: 20170428
  Serious: Yes (Other)
  Sender: FDA-Public Use
  Company Number: US-BAYER-2016-246369

PATIENT
  Age: 24 Year
  Sex: Female

DRUGS (1)
  1. MIRENA [Suspect]
     Active Substance: LEVONORGESTREL
     Indication: CONTRACEPTION
     Dosage: 20 MCG/24HR, CONT
     Route: 015
     Dates: start: 20140619

REACTIONS (9)
  - Genital haemorrhage [Unknown]
  - Device dislocation [Unknown]
  - Device difficult to use [Unknown]
  - Back pain [None]
  - Migraine [None]
  - Pain [None]
  - Adverse reaction [None]
  - Abdominal pain lower [None]
  - Headache [None]

NARRATIVE: CASE EVENT DATE: 20170109
